FAERS Safety Report 7248463-0 (Version None)
Quarter: 2011Q1

REPORT INFORMATION
  Report Type: 
  Country: None (occurrence: None)
  Receive Date: 20110127
  Receipt Date: 20110124
  Transmission Date: 20110831
  Serious: Yes (Hospitalization)
  Sender: FDA-Public Use
  Company Number: GB-PFIZER INC-2011017358

PATIENT
  Age: 55 Year
  Sex: Male

DRUGS (3)
  1. METOCLOPRAMIDE [Concomitant]
     Dosage: 10 MG TOTAL DAILY DOSE
     Route: 048
     Dates: start: 20100823
  2. DIFFLAM [Concomitant]
     Dosage: 30 ML TOTAL DAILY DOSE
     Route: 048
     Dates: start: 20101029
  3. SUTENT [Suspect]
     Indication: TRANSITIONAL CELL CARCINOMA
     Dosage: 12.5 MG, UNK
     Dates: start: 20100820

REACTIONS (1)
  - CHEST DISCOMFORT [None]
